FAERS Safety Report 8770546 (Version 1)
Quarter: 2012Q4

REPORT INFORMATION
  Report Type: 
  Country: US (occurrence: US)
  Receive Date: 20120906
  Receipt Date: 20120906
  Transmission Date: 20130627
  Serious: No
  Sender: FDA-Public Use
  Company Number: US-009507513-2012SP035821

PATIENT

DRUGS (2)
  1. CLARITIN CHEWABLE TABLETS [Suspect]
     Indication: SEASONAL ALLERGY
     Dosage: 5 mg, BID
     Route: 048
  2. TYLENOL [Concomitant]
     Indication: OROPHARYNGEAL PAIN
     Dosage: UNK UNK, Unknown

REACTIONS (1)
  - Accidental overdose [Not Recovered/Not Resolved]
